FAERS Safety Report 23366746 (Version 3)
Quarter: 2024Q1

REPORT INFORMATION
  Report Type: Spontaneous
  Country: US (occurrence: US)
  Receive Date: 20240104
  Receipt Date: 20240206
  Transmission Date: 20240410
  Serious: Yes (Other)
  Sender: FDA-Public Use
  Company Number: US-PFIZER INC-PV202300209064

PATIENT
  Age: 79 Year
  Sex: Male

DRUGS (3)
  1. INLYTA [Suspect]
     Active Substance: AXITINIB
     Dosage: 5 MG
  2. INLYTA [Suspect]
     Active Substance: AXITINIB
     Dosage: 1MG DOSE FOR 7 DAYS
  3. KEYTRUDA [Concomitant]
     Active Substance: PEMBROLIZUMAB
     Dosage: UNK

REACTIONS (10)
  - Haematochezia [Unknown]
  - Constipation [Unknown]
  - Headache [Unknown]
  - Rhinorrhoea [Unknown]
  - Taste disorder [Unknown]
  - Decreased appetite [Unknown]
  - Dry skin [Unknown]
  - Dry mouth [Unknown]
  - Illness [Unknown]
  - Blood pressure increased [Unknown]
